FAERS Safety Report 12538466 (Version 2)
Quarter: 2016Q3

REPORT INFORMATION
  Report Type: Spontaneous
  Country: CN (occurrence: CN)
  Receive Date: 20160707
  Receipt Date: 20160725
  Transmission Date: 20161109
  Serious: Yes (Other)
  Sender: FDA-Public Use
  Company Number: CN-ROCHE-1790718

PATIENT
  Age: 72 Year
  Sex: Female

DRUGS (3)
  1. NOREPINEPHRINE [Concomitant]
     Active Substance: NOREPINEPHRINE\NOREPINEPHRINE BITARTRATE
     Route: 042
  2. METHOXAMINE [Concomitant]
     Active Substance: METHOXAMINE
     Route: 042
  3. ACTILYSE [Suspect]
     Active Substance: ALTEPLASE
     Indication: PULMONARY EMBOLISM
     Route: 042

REACTIONS (3)
  - Haemorrhage [Unknown]
  - Renal failure [Recovered/Resolved]
  - Pulmonary artery thrombosis [Unknown]
